FAERS Safety Report 4765210-2 (Version None)
Quarter: 2005Q3

REPORT INFORMATION
  Report Type: 
  Country: None (occurrence: None)
  Receive Date: 20050906
  Receipt Date: 20050824
  Transmission Date: 20060218
  Serious: Yes (Other)
  Sender: FDA-Public Use
  Company Number: 2005108671

PATIENT
  Age: 47 Year
  Sex: Male
  Weight: 83.9154 kg

DRUGS (8)
  1. NEURONTIN [Suspect]
     Indication: HEADACHE
     Dosage: 900 MG (300 MG, 3 IN 1 D)
     Dates: start: 20050301
  2. ZYRTEC [Concomitant]
  3. PROZAC [Concomitant]
  4. TRICOR [Concomitant]
  5. NEXIUM [Concomitant]
  6. MIDRIN (DICHLORALPHENAZONE, ISOMETHEPTENE, PARACETAMOL) [Concomitant]
  7. KLONOPIN [Concomitant]
  8. FLONASE [Concomitant]

REACTIONS (5)
  - CONVULSION [None]
  - ECONOMIC PROBLEM [None]
  - HEADACHE [None]
  - LOSS OF CONSCIOUSNESS [None]
  - WEIGHT INCREASED [None]
